FAERS Safety Report 5129306-8 (Version None)
Quarter: 2006Q4

REPORT INFORMATION
  Report Type: 
  Country: None (occurrence: None)
  Receive Date: 20061011
  Receipt Date: 20060925
  Transmission Date: 20070319
  Serious: Yes (Hospitalization, Other)
  Sender: FDA-Public Use
  Company Number: 2006AL002924

PATIENT
  Age: 77 Year
  Sex: Male

DRUGS (3)
  1. SPIRONOLACTONE [Suspect]
     Indication: GLOMERULONEPHRITIS MEMBRANOUS
     Dosage: 100 MG; PO
     Route: 048
  2. TEMOCAPRIL [Concomitant]
  3. VALSARTAN [Concomitant]

REACTIONS (3)
  - DIARRHOEA [None]
  - DOLICHOCOLON [None]
  - SUBILEUS [None]
